FAERS Safety Report 15877075 (Version 2)
Quarter: 2019Q1

REPORT INFORMATION
  Report Type: Report from Study
  Country: ZA (occurrence: ZA)
  Receive Date: 20190128
  Receipt Date: 20190307
  Transmission Date: 20190417
  Serious: Yes (Life-Threatening, Hospitalization, Other)
  Sender: FDA-Public Use
  Company Number: ZA-SAKK-2018SA286817AA

PATIENT
  Age: 62 Year
  Sex: Male

DRUGS (6)
  1. DIAGLUCIDE [Concomitant]
     Active Substance: GLICLAZIDE
     Dosage: BEFORE BREAKFAST-120MG
     Dates: start: 20160101
  2. OPTISULIN (INSULIN GLARGINE) [Suspect]
     Active Substance: INSULIN GLARGINE
     Dosage: 26 U, HS
     Dates: start: 20180929
  3. NO STUDY DRUG GIVEN [Suspect]
     Active Substance: UNSPECIFIED INGREDIENT
  4. BIGSENS [Concomitant]
     Active Substance: METFORMIN HYDROCHLORIDE
     Dosage: AFTER SUPPER-1000MG, AFTER BREAKFAST-1000MG
     Dates: start: 20160101
  5. FORXIGA [Concomitant]
     Active Substance: DAPAGLIFLOZIN
     Dosage: BEFORE BREAKFAST-10MG
     Dates: start: 20180930
  6. OPTISULIN (INSULIN GLARGINE) [Suspect]
     Active Substance: INSULIN GLARGINE
     Indication: TYPE 2 DIABETES MELLITUS
     Dosage: 16 U, HS
     Dates: start: 20180929

REACTIONS (13)
  - Blood glucose decreased [Not Recovered/Not Resolved]
  - Headache [Not Recovered/Not Resolved]
  - Glycosylated haemoglobin increased [Unknown]
  - Visual acuity reduced [Not Recovered/Not Resolved]
  - Renal failure [Recovered/Resolved]
  - Heart rate irregular [Not Recovered/Not Resolved]
  - Cardiac disorder [Not Recovered/Not Resolved]
  - Prostatectomy [Unknown]
  - Fatigue [Not Recovered/Not Resolved]
  - Lethargy [Not Recovered/Not Resolved]
  - Weight decreased [Not Recovered/Not Resolved]
  - Fluid retention [Recovered/Resolved]
  - Blood pressure decreased [Not Recovered/Not Resolved]

NARRATIVE: CASE EVENT DATE: 20180929
